FAERS Safety Report 22355343 (Version 1)
Quarter: 2023Q2

REPORT INFORMATION
  Report Type: Spontaneous
  Country: US (occurrence: US)
  Receive Date: 20230523
  Receipt Date: 20230523
  Transmission Date: 20230721
  Serious: Yes (Other)
  Sender: FDA-Public Use
  Company Number: US-BRISTOL-MYERS SQUIBB COMPANY-2023-069356

PATIENT
  Age: 91 Year
  Sex: Female
  Weight: 53.98 kg

DRUGS (1)
  1. POMALYST [Suspect]
     Active Substance: POMALIDOMIDE
     Indication: Plasma cell myeloma
     Dosage: DAILY M,W ANDF
     Route: 048
     Dates: start: 20230301, end: 20230516

REACTIONS (2)
  - Pancreatic carcinoma [Unknown]
  - Off label use [Unknown]
